FAERS Safety Report 20873426 (Version 2)
Quarter: 2023Q1

REPORT INFORMATION
  Report Type: Report from Study
  Country: US (occurrence: US)
  Receive Date: 20220525
  Receipt Date: 20230227
  Transmission Date: 20230418
  Serious: Yes (Hospitalization)
  Sender: FDA-Public Use
  Company Number: US-TAKEDA-2022TUS033970

PATIENT
  Sex: Female
  Weight: 57.6 kg

DRUGS (26)
  1. HUMAN IMMUNOGLOBULIN G [Suspect]
     Active Substance: HUMAN IMMUNOGLOBULIN G
     Indication: Immunodeficiency common variable
     Dosage: 8 GRAM, 1/WEEK
     Route: 058
     Dates: start: 20210206
  2. DIPHENHYDRAMINE [Concomitant]
     Active Substance: DIPHENHYDRAMINE
  3. VITAMIN D3 [Concomitant]
     Active Substance: CHOLECALCIFEROL
  4. ESTRADIOL [Concomitant]
     Active Substance: ESTRADIOL
  5. EPINEPHRINE [Concomitant]
     Active Substance: EPINEPHRINE
  6. MAGNESIUM [Concomitant]
     Active Substance: MAGNESIUM
  7. DEXILANT [Concomitant]
     Active Substance: DEXLANSOPRAZOLE
  8. FLUTICASONE PROPIONATE [Concomitant]
     Active Substance: FLUTICASONE PROPIONATE
  9. HYDROXYCHLOROQUINE SULFATE [Concomitant]
     Active Substance: HYDROXYCHLOROQUINE SULFATE
  10. CALCIUM CITRATE [Concomitant]
     Active Substance: CALCIUM CITRATE
  11. CALCITONIN SALMON [Concomitant]
     Active Substance: CALCITONIN SALMON
  12. ZYRTEC [Concomitant]
     Active Substance: CETIRIZINE HYDROCHLORIDE
  13. PROVENTIL HFA [Concomitant]
     Active Substance: ALBUTEROL SULFATE
  14. BACLOFEN [Concomitant]
     Active Substance: BACLOFEN
  15. ACETAMINOPHEN [Concomitant]
     Active Substance: ACETAMINOPHEN
  16. ORENCIA [Concomitant]
     Active Substance: ABATACEPT
  17. AZELASTINE HYDROCHLORIDE [Concomitant]
     Active Substance: AZELASTINE HYDROCHLORIDE
  18. LEVOTHYROXINE SODIUM [Concomitant]
     Active Substance: LEVOTHYROXINE SODIUM
  19. NITROGLYCERIN [Concomitant]
     Active Substance: NITROGLYCERIN
  20. POTASSIUM CITRATE [Concomitant]
     Active Substance: POTASSIUM CITRATE
  21. LIDOCAINE [Concomitant]
     Active Substance: LIDOCAINE
  22. MUPIROCIN [Concomitant]
     Active Substance: MUPIROCIN
  23. DILTIAZEM [Concomitant]
     Active Substance: DILTIAZEM
  24. FLURANDRENOLIDE [Concomitant]
     Active Substance: FLURANDRENOLIDE
  25. TRETINOIN [Concomitant]
     Active Substance: TRETINOIN
  26. VASCEPA [Concomitant]
     Active Substance: ICOSAPENT ETHYL

REACTIONS (2)
  - Gastrointestinal infection [Unknown]
  - Foot fracture [Unknown]
